FAERS Safety Report 7115275-8 (Version None)
Quarter: 2010Q4

REPORT INFORMATION
  Report Type: 
  Country: None (occurrence: None)
  Receive Date: 20101117
  Receipt Date: 20101117
  Transmission Date: 20110411
  Serious: Yes (Hospitalization)
  Sender: FDA-Public Use
  Company Number: None

PATIENT
  Sex: Female

DRUGS (2)
  1. ESTRADIOL/PROGESTERONE [Suspect]
     Indication: MENOPAUSAL SYMPTOMS
     Dosage: .5 ESTRADIOL/PROGESTERONE 100 1 DAILY ORAL
     Route: 048
     Dates: start: 20101109, end: 20101110
  2. PREMPRO [Suspect]

REACTIONS (1)
  - PULMONARY EMBOLISM [None]
